FAERS Safety Report 10252084 (Version 1)
Quarter: 2014Q2

REPORT INFORMATION
  Report Type: Report from Study
  Country: MX (occurrence: MX)
  Receive Date: 20140623
  Receipt Date: 20140623
  Transmission Date: 20141212
  Serious: Yes (Disabling)
  Sender: FDA-Public Use
  Company Number: PHHY2014MX076951

PATIENT
  Sex: 0

DRUGS (1)
  1. STALEVO [Suspect]
     Dosage: 2 DF, DAILY (2 TABLETS (200/50/12.5MG) DAILY )
     Route: 048

REACTIONS (1)
  - Deafness [Unknown]
